FAERS Safety Report 25048903 (Version 2)
Quarter: 2025Q1

REPORT INFORMATION
  Report Type: Spontaneous
  Country: PL (occurrence: PL)
  Receive Date: 20250307
  Receipt Date: 20250314
  Transmission Date: 20250409
  Serious: Yes (Hospitalization, Other)
  Sender: AUROBINDO
  Company Number: PL-RICHTER-2025-GR-001639

PATIENT
  Age: 30 Year
  Sex: Male
  Weight: 117.9 kg

DRUGS (1)
  1. PAROXETINE [Suspect]
     Active Substance: PAROXETINE
     Indication: Depression
     Route: 065

REACTIONS (5)
  - Obesity [Recovering/Resolving]
  - Metabolic dysfunction-associated steatohepatitis [Unknown]
  - Hyperuricaemia [Unknown]
  - Alanine aminotransferase increased [Unknown]
  - Weight increased [Unknown]
